FAERS Safety Report 8683508 (Version 2)
Quarter: 2014Q3

REPORT INFORMATION
  Report Type: Spontaneous
  Country: ES (occurrence: ES)
  Receive Date: 20120726
  Receipt Date: 20140707
  Transmission Date: 20150326
  Serious: Yes (Life-Threatening, Hospitalization)
  Sender: FDA-Public Use
  Company Number: ES-RANBAXY-2012R1-58139

PATIENT
  Age: 18 Year
  Sex: Female

DRUGS (1)
  1. FLECAINIDE [Suspect]
     Active Substance: FLECAINIDE
     Indication: PRODUCT USED FOR UNKNOWN INDICATION
     Dosage: UNK
     Route: 048

REACTIONS (5)
  - Hypotension [Recovering/Resolving]
  - Intentional overdose [Recovering/Resolving]
  - Suicide attempt [Recovering/Resolving]
  - Somnolence [Recovering/Resolving]
  - Bundle branch block right [Recovered/Resolved]
